FAERS Safety Report 8369898-9 (Version None)
Quarter: 2012Q1

REPORT INFORMATION
  Report Type: 
  Country: None (occurrence: None)
  Receive Date: 20120323
  Receipt Date: 20111117
  Transmission Date: 20120608
  Serious: Yes (Disabling)
  Sender: FDA-Public Use
  Company Number: 163-21880-11113083

PATIENT
  Age: 78 Year
  Sex: Female

DRUGS (7)
  1. SYNTHROID [Concomitant]
  2. CALCIUM [Concomitant]
  3. LIPITOR [Concomitant]
  4. COUMADIN [Concomitant]
  5. OMEPRAZOLE [Concomitant]
  6. REVLIMID [Suspect]
     Indication: 5Q MINUS SYNDROME
     Dosage: 15 MG, DAILY, PO;
     Route: 048
     Dates: start: 20110601, end: 20110809
  7. VITAMIN D [Concomitant]

REACTIONS (2)
  - FATIGUE [None]
  - PANCYTOPENIA [None]
